FAERS Safety Report 8600435-7 (Version None)
Quarter: 2012Q3

REPORT INFORMATION
  Report Type: 
  Country: None (occurrence: None)
  Receive Date: 20120808
  Receipt Date: 20120808
  Transmission Date: 20120928
  Serious: Yes (Death)
  Sender: FDA-Public Use
  Company Number: None

PATIENT
  Sex: Male
  Weight: 6 kg

DRUGS (1)
  1. ZANTAC [Suspect]

REACTIONS (2)
  - UNRESPONSIVE TO STIMULI [None]
  - RESUSCITATION [None]
